FAERS Safety Report 5198456-2 (Version None)
Quarter: 2006Q4

REPORT INFORMATION
  Report Type: 
  Country: None (occurrence: None)
  Receive Date: 20061229
  Receipt Date: 20061229
  Transmission Date: 20070319
  Serious: Yes (Other)
  Sender: FDA-Public Use
  Company Number: None

PATIENT
  Age: 8 Month
  Sex: Male
  Weight: 10.8863 kg

DRUGS (2)
  1. MAGNESIUM SULFATE [Suspect]
     Indication: PREMATURE LABOUR
     Dosage: IV DRIP
     Route: 041
     Dates: start: 20050607, end: 20050719
  2. TERBUTALINE SULFATE [Suspect]
     Indication: PREMATURE LABOUR
     Dosage: IM
     Route: 030
     Dates: start: 20050607, end: 20050802

REACTIONS (2)
  - ASTHMA [None]
  - DRUG EXPOSURE DURING PREGNANCY [None]
